FAERS Safety Report 8345621-9 (Version None)
Quarter: 2012Q2

REPORT INFORMATION
  Report Type: 
  Country: None (occurrence: None)
  Receive Date: 20120508
  Receipt Date: 20120426
  Transmission Date: 20120825
  Serious: Yes (Other)
  Sender: FDA-Public Use
  Company Number: US-ABBOTT-12P-163-0929593-00

PATIENT
  Sex: Male
  Weight: 75.818 kg

DRUGS (6)
  1. GENERIC BENAZEPRIL [Concomitant]
     Indication: PRODUCT USED FOR UNKNOWN INDICATION
  2. NIASPAN [Suspect]
     Indication: BLOOD TRIGLYCERIDES INCREASED
  3. GENERIC COMBIVENT [Concomitant]
     Indication: PRODUCT USED FOR UNKNOWN INDICATION
  4. GENERIC LIPITOR [Concomitant]
     Indication: PRODUCT USED FOR UNKNOWN INDICATION
  5. NIASPAN [Suspect]
     Dates: start: 20120401
  6. GENERIC ADVAIR [Concomitant]
     Indication: PRODUCT USED FOR UNKNOWN INDICATION

REACTIONS (7)
  - SWELLING FACE [None]
  - BLOOD TRIGLYCERIDES DECREASED [None]
  - FLUSHING [None]
  - PRURITUS [None]
  - ERYTHEMA [None]
  - KNEE ARTHROPLASTY [None]
  - URTICARIA [None]
